FAERS Safety Report 9805347 (Version 2)
Quarter: 2014Q2

REPORT INFORMATION
  Report Type: Spontaneous
  Country: SE (occurrence: SE)
  Receive Date: 20140109
  Receipt Date: 20140605
  Transmission Date: 20141212
  Serious: Yes (Other)
  Sender: FDA-Public Use
  Company Number: SE-ROCHE-1330268

PATIENT
  Age: 21 Year
  Sex: Male

DRUGS (3)
  1. PEGASYS [Suspect]
     Indication: HEPATITIS C
     Route: 065
     Dates: start: 20130430, end: 20131015
  2. COPEGUS [Suspect]
     Indication: HEPATITIS C
     Route: 065
     Dates: start: 20130430, end: 20131015
  3. INCIVO [Suspect]
     Indication: HEPATITIS C
     Dosage: FILM COATED TABLET
     Route: 065
     Dates: start: 20130430, end: 20130729

REACTIONS (4)
  - Anaemia [Recovered/Resolved]
  - Leukopenia [Recovered/Resolved]
  - Nausea [Recovered/Resolved]
  - Oral pain [Recovered/Resolved]
